FAERS Safety Report 10412849 (Version 1)
Quarter: 2014Q3

REPORT INFORMATION
  Report Type: Spontaneous
  Country: US (occurrence: None)
  Receive Date: 20140826
  Receipt Date: 20140826
  Transmission Date: 20150326
  Serious: No
  Sender: FDA-Public Use
  Company Number: None

PATIENT
  Age: 58 Year
  Sex: Female
  Weight: 92.99 kg

DRUGS (1)
  1. ATORVASTATIN [Suspect]
     Active Substance: ATORVASTATIN
     Indication: BLOOD CHOLESTEROL INCREASED
     Route: 048
     Dates: start: 20140623, end: 20140806

REACTIONS (8)
  - Depression [None]
  - Activities of daily living impaired [None]
  - Impaired work ability [None]
  - Lethargy [None]
  - Balance disorder [None]
  - Cognitive disorder [None]
  - Feeling abnormal [None]
  - Anxiety disorder [None]

NARRATIVE: CASE EVENT DATE: 20140623
